FAERS Safety Report 4362820-1 (Version None)
Quarter: 2004Q2

REPORT INFORMATION
  Report Type: 
  Country: None (occurrence: None)
  Receive Date: 20040518
  Receipt Date: 20040406
  Transmission Date: 20050107
  Serious: Yes (Hospitalization)
  Sender: FDA-Public Use
  Company Number: US-JNJFOC-20040200426

PATIENT
  Age: 67 Year
  Sex: Male
  Weight: 106.5953 kg

DRUGS (4)
  1. LEVAQUIN [Suspect]
     Indication: SINUS DISORDER
     Dosage: 500 MG, ORAL
     Route: 048
     Dates: start: 20040116, end: 20040121
  2. ATENOLOL [Concomitant]
  3. LANOXIN [Concomitant]
  4. PREVACID [Concomitant]

REACTIONS (19)
  - ALANINE AMINOTRANSFERASE INCREASED [None]
  - ANTIBODY TEST POSITIVE [None]
  - ASPARTATE AMINOTRANSFERASE INCREASED [None]
  - ASTHENIA [None]
  - BLOOD URINE [None]
  - CSF GLUCOSE INCREASED [None]
  - DEMYELINATION [None]
  - DISEASE RECURRENCE [None]
  - GUILLAIN-BARRE SYNDROME [None]
  - INFLAMMATION [None]
  - MYOSITIS [None]
  - OXYGEN SATURATION DECREASED [None]
  - POLYARTERITIS NODOSA [None]
  - POLYMYOSITIS [None]
  - POLYNEUROPATHY [None]
  - RED BLOOD CELLS CSF POSITIVE [None]
  - RESTLESSNESS [None]
  - VASCULITIS NECROTISING [None]
  - WEGENER'S GRANULOMATOSIS [None]
